FAERS Safety Report 7803171-X (Version None)
Quarter: 2011Q4

REPORT INFORMATION
  Report Type: 
  Country: None (occurrence: None)
  Receive Date: 20111005
  Receipt Date: 20110926
  Transmission Date: 20120403
  Serious: Yes (Hospitalization, Other)
  Sender: FDA-Public Use
  Company Number: 2011002216

PATIENT
  Age: 64 Year
  Sex: Female

DRUGS (1)
  1. TARCEVA [Suspect]
     Indication: PANCREATIC CARCINOMA
     Dosage: 200 MG, UID/QD, ORAL ; 200 MG, UID/QD, ORAL
     Route: 048
     Dates: start: 20110415

REACTIONS (15)
  - MUSCULAR WEAKNESS [None]
  - DEPRESSION [None]
  - HYPOPHAGIA [None]
  - ANAEMIA [None]
  - HEADACHE [None]
  - DRY SKIN [None]
  - DECREASED APPETITE [None]
  - VERTIGO [None]
  - FATIGUE [None]
  - ABDOMINAL PAIN UPPER [None]
  - CHILLS [None]
  - WHITE BLOOD CELL COUNT DECREASED [None]
  - SOMNOLENCE [None]
  - RASH [None]
  - RETCHING [None]
